FAERS Safety Report 16545706 (Version 1)
Quarter: 2019Q3

REPORT INFORMATION
  Report Type: Report from Study
  Country: IE (occurrence: IE)
  Receive Date: 20190709
  Receipt Date: 20190709
  Transmission Date: 20191004
  Serious: Yes (Other)
  Sender: FDA-Public Use
  Company Number: IE-EMD SERONO-9093024

PATIENT
  Age: 48 Year
  Sex: Male

DRUGS (2)
  1. MAVENCLAD [Suspect]
     Active Substance: CLADRIBINE
     Dosage: SECOND WEEK THERAPY: TWO DOSAGE FORMS ON DAYS 1 AND 2 AND ONE DOSAGE FORM ON DAYS 3 TO 5 (EACH DOSAG
     Route: 048
     Dates: start: 20190610
  2. MAVENCLAD [Suspect]
     Active Substance: CLADRIBINE
     Indication: RELAPSING-REMITTING MULTIPLE SCLEROSIS
     Dosage: FIRST WEEK THERAPY: TWO DOSAGE FORMS ON DAYS 1 AND 2 AND ONE DOSAGE FORM ON DAYS 3 TO 5 (EACH DOSAGE
     Route: 048
     Dates: start: 20190513

REACTIONS (2)
  - Lower respiratory tract infection [Recovered/Resolved]
  - Fatigue [Not Recovered/Not Resolved]

NARRATIVE: CASE EVENT DATE: 20190516
